FAERS Safety Report 5767547-7 (Version None)
Quarter: 2008Q2

REPORT INFORMATION
  Report Type: 
  Country: None (occurrence: None)
  Receive Date: 20080611
  Receipt Date: 20080611
  Transmission Date: 20081010
  Serious: Yes (Hospitalization)
  Sender: FDA-Public Use
  Company Number: None

PATIENT
  Age: 63 Year
  Sex: Male
  Weight: 85.7 kg

DRUGS (1)
  1. WARFARIN SODIUM [Suspect]
     Indication: PULMONARY EMBOLISM
     Dosage: 8 MG EVERYDAY PO
     Route: 048
     Dates: start: 20080602, end: 20080605

REACTIONS (2)
  - ILL-DEFINED DISORDER [None]
  - INTERNATIONAL NORMALISED RATIO ABNORMAL [None]
